FAERS Safety Report 9207875 (Version 2)
Quarter: 2013Q2

REPORT INFORMATION
  Report Type: Spontaneous
  Country: JP (occurrence: JP)
  Receive Date: 20130403
  Receipt Date: 20130603
  Transmission Date: 20140414
  Serious: Yes (Hospitalization)
  Sender: FDA-Public Use
  Company Number: JP-GLAXOSMITHKLINE-B0879264A

PATIENT
  Age: 80 Year
  Sex: Female

DRUGS (2)
  1. VALTREX [Suspect]
     Indication: ORAL HERPES
     Dosage: 500MG TWICE PER DAY
     Route: 048
     Dates: start: 20130122, end: 20130125
  2. AMLODIN [Concomitant]
     Dosage: 5MG PER DAY
     Route: 048

REACTIONS (2)
  - Interstitial lung disease [Unknown]
  - Dyspnoea [Unknown]
